FAERS Safety Report 13048799 (Version 2)
Quarter: 2016Q4

REPORT INFORMATION
  Report Type: Spontaneous
  Country: US (occurrence: US)
  Receive Date: 20161221
  Receipt Date: 20161227
  Transmission Date: 20170207
  Serious: No
  Sender: FDA-Public Use
  Company Number: US-HORIZON-BUP-0124-2016

PATIENT
  Age: 6 Year
  Sex: Male

DRUGS (4)
  1. CYCLINEX [Concomitant]
  2. CITRULLINE [Concomitant]
     Active Substance: CITRULLINE
  3. PROPHREE [Concomitant]
  4. BUPHENYL [Suspect]
     Active Substance: SODIUM PHENYLBUTYRATE
     Indication: UREA CYCLE ENZYME DEFICIENCY
     Dosage: 18 TABLETS A DAY, QID
     Dates: start: 201607

REACTIONS (4)
  - Rash generalised [Not Recovered/Not Resolved]
  - Pruritus [Not Recovered/Not Resolved]
  - Urine odour abnormal [Not Recovered/Not Resolved]
  - Dry skin [Not Recovered/Not Resolved]
